FAERS Safety Report 5350666-7 (Version None)
Quarter: 2007Q2

REPORT INFORMATION
  Report Type: 
  Country: None (occurrence: None)
  Receive Date: 20070608
  Receipt Date: 20070608
  Transmission Date: 20071010
  Serious: Yes (Hospitalization)
  Sender: FDA-Public Use
  Company Number: None

PATIENT
  Age: 76 Year
  Sex: Male
  Weight: 72.5755 kg

DRUGS (8)
  1. XALATAN [Suspect]
     Indication: OPEN ANGLE GLAUCOMA
     Dosage: 1 GTT QHS
     Dates: start: 20070329, end: 20070501
  2. IBUPROFEN [Suspect]
     Indication: OPEN ANGLE GLAUCOMA
     Dosage: 400 MG, TID, PO
     Route: 048
     Dates: start: 20070329, end: 20070412
  3. NIASPAN [Concomitant]
  4. ZOCOR [Concomitant]
  5. DIOVAN [Concomitant]
  6. ASPIRIN [Concomitant]
  7. AVODART [Concomitant]
  8. COREG [Concomitant]

REACTIONS (2)
  - FALL [None]
  - RENAL FAILURE [None]
